FAERS Safety Report 8915043 (Version 1)
Quarter: 2012Q4

REPORT INFORMATION
  Report Type: 
  Country: JP (occurrence: JP)
  Receive Date: 20121119
  Receipt Date: 20121119
  Transmission Date: 20130627
  Serious: Yes (Other)
  Sender: FDA-Public Use
  Company Number: JP-ROCHE-1156045

PATIENT
  Age: 80 Year
  Sex: Male

DRUGS (3)
  1. LUPRAC [Suspect]
     Indication: OEDEMA DUE TO CARDIAC DISEASE
     Route: 048
     Dates: start: 20120706
  2. DIART [Concomitant]
     Route: 048
  3. ALDACTONE-A [Concomitant]
     Dosage: 25 dosage forms
     Route: 065

REACTIONS (1)
  - Penile oedema [Unknown]
